FAERS Safety Report 7592933-2 (Version None)
Quarter: 2011Q3

REPORT INFORMATION
  Report Type: 
  Country: None (occurrence: None)
  Receive Date: 20110706
  Receipt Date: 20110621
  Transmission Date: 20111222
  Serious: Yes (Death)
  Sender: FDA-Public Use
  Company Number: US-ROCHE-772158

PATIENT
  Sex: Male

DRUGS (7)
  1. MESTINON [Concomitant]
     Dosage: DOSE:40, FREQ:QID, INDICATION:MG
     Route: 048
  2. CHLORTHALID [Concomitant]
  3. PREDNISONE [Concomitant]
     Dosage: INDICATION:MG
  4. METOPROLOL TARTRATE [Concomitant]
  5. LISINOPRIL [Concomitant]
  6. LEVEMIR [Concomitant]
  7. CELLCEPT [Suspect]
     Indication: MYASTHENIA GRAVIS
     Route: 048
     Dates: start: 20080901, end: 20101101

REACTIONS (1)
  - DEATH [None]
